FAERS Safety Report 9701157 (Version 1)
Quarter: 2013Q4

REPORT INFORMATION
  Report Type: Spontaneous
  Country: US (occurrence: US)
  Receive Date: 20131121
  Receipt Date: 20131121
  Transmission Date: 20140711
  Serious: No
  Sender: FDA-Public Use
  Company Number: US-GILEAD-2008-0015837

PATIENT
  Sex: Female

DRUGS (16)
  1. LETAIRIS [Suspect]
     Indication: PULMONARY ARTERIAL HYPERTENSION
     Route: 048
     Dates: start: 20080219
  2. XOPENEX [Concomitant]
     Route: 048
     Dates: start: 20080218
  3. ASTELIN [Concomitant]
     Route: 055
     Dates: start: 20080218
  4. POTASSIUM [Concomitant]
     Route: 048
     Dates: start: 20080218
  5. CELEBREX [Concomitant]
     Route: 048
     Dates: start: 20080218
  6. NEXIUM [Concomitant]
     Route: 048
     Dates: start: 20080218
  7. ALLOPURINOL [Concomitant]
     Route: 048
     Dates: start: 20080218
  8. FLONASE [Concomitant]
     Route: 055
     Dates: start: 20080218
  9. DEMADEX [Concomitant]
     Route: 048
     Dates: start: 20080218
  10. HCTZ/TRIAMTERENE [Concomitant]
     Route: 048
     Dates: start: 20080218
  11. COUMADIN [Concomitant]
     Route: 048
     Dates: start: 20080218
  12. DIGOXIN [Concomitant]
     Route: 048
     Dates: start: 20080218
  13. LASIX [Concomitant]
     Route: 048
     Dates: start: 20080218
  14. MICARDIS [Concomitant]
     Route: 048
     Dates: start: 20080218
  15. COREG [Concomitant]
     Route: 048
     Dates: start: 20080218
  16. ALLEGRA [Concomitant]
     Route: 048
     Dates: start: 20080218

REACTIONS (1)
  - Swelling [None]
